FAERS Safety Report 8607677-5 (Version None)
Quarter: 2012Q3

REPORT INFORMATION
  Report Type: 
  Country: None (occurrence: None)
  Receive Date: 20120821
  Receipt Date: 20120816
  Transmission Date: 20120928
  Serious: Yes (Hospitalization)
  Sender: FDA-Public Use
  Company Number: CN-BAYER-2012-084922

PATIENT
  Age: 8 Year
  Sex: Female

DRUGS (1)
  1. CIPROFLOXACIN [Suspect]
     Indication: UPPER RESPIRATORY TRACT INFECTION
     Route: 041

REACTIONS (4)
  - HENOCH-SCHONLEIN PURPURA [None]
  - RASH PAPULAR [None]
  - PYREXIA [None]
  - PRURITUS [None]
